FAERS Safety Report 21021081 (Version 1)
Quarter: 2022Q2

REPORT INFORMATION
  Report Type: Spontaneous
  Country: DE (occurrence: DE)
  Receive Date: 20220629
  Receipt Date: 20220629
  Transmission Date: 20220720
  Serious: Yes (Hospitalization, Other)
  Sender: FDA-Public Use
  Company Number: None

PATIENT
  Age: 53 Year
  Sex: Male
  Weight: 80 kg

DRUGS (3)
  1. GEMCITABINE [Suspect]
     Active Substance: GEMCITABINE
     Indication: Non-small cell lung cancer
     Dosage: 1800 MG, UNKNOWN
     Route: 065
     Dates: start: 20220106
  2. NIVOLUMAB [Concomitant]
     Active Substance: NIVOLUMAB
     Indication: Non-small cell lung cancer
     Dosage: 240 MG, UNKNOWN
     Route: 065
     Dates: start: 20220106
  3. CISPLATIN [Concomitant]
     Active Substance: CISPLATIN
     Indication: Non-small cell lung cancer
     Dosage: 130 MG, UNKNOWN
     Route: 065
     Dates: start: 20220106

REACTIONS (2)
  - Acute sinusitis [Recovered/Resolved]
  - Eye abscess [Recovered/Resolved]

NARRATIVE: CASE EVENT DATE: 20220426
